FAERS Safety Report 6108824-X (Version None)
Quarter: 2009Q1

REPORT INFORMATION
  Report Type: 
  Country: None (occurrence: None)
  Receive Date: 20090310
  Receipt Date: 20090303
  Transmission Date: 20090719
  Serious: Yes (Other)
  Sender: FDA-Public Use
  Company Number: DE-BRISTOL-MYERS SQUIBB COMPANY-14536247

PATIENT
  Age: 69 Year
  Sex: Female
  Weight: 65 kg

DRUGS (11)
  1. METFORMIN HCL [Suspect]
     Indication: DIABETES MELLITUS
     Route: 048
     Dates: start: 20090110, end: 20090112
  2. GABAPENTIN [Suspect]
     Indication: NEURALGIA
     Route: 048
     Dates: start: 20081201, end: 20090112
  3. CLEXANE [Concomitant]
  4. CLONIDINE [Concomitant]
     Indication: HYPERTENSION
     Route: 048
     Dates: start: 20081201, end: 20090107
  5. DECORTIN [Concomitant]
  6. MAGNESIUM SULFATE [Concomitant]
  7. METOCLOPRAMIDE HYDROCHLORIDE [Concomitant]
  8. METRONIDAZOLE [Concomitant]
     Indication: DIARRHOEA
     Route: 048
     Dates: start: 20081222, end: 20090107
  9. NEXIUM [Concomitant]
  10. ACETAMINOPHEN [Concomitant]
     Indication: PAIN
     Route: 048
     Dates: start: 20081222, end: 20090126
  11. ZOPICLON [Concomitant]
     Dosage: STRENGTH: 7.5

REACTIONS (1)
  - AGRANULOCYTOSIS [None]
